FAERS Safety Report 15916376 (Version 1)
Quarter: 2019Q1

REPORT INFORMATION
  Report Type: Spontaneous
  Country: US (occurrence: US)
  Receive Date: 20190205
  Receipt Date: 20190205
  Transmission Date: 20190417
  Serious: Yes (Hospitalization)
  Sender: FDA-Public Use
  Company Number: None

PATIENT
  Age: 37 Year
  Sex: Male

DRUGS (19)
  1. WARFARIN [Concomitant]
     Active Substance: WARFARIN
  2. NEXIUM [Concomitant]
     Active Substance: ESOMEPRAZOLE MAGNESIUM
  3. NEURONTIN [Concomitant]
     Active Substance: GABAPENTIN
  4. IBUPROFEN. [Concomitant]
     Active Substance: IBUPROFEN
  5. BUT/APAP/CAF [Concomitant]
  6. AMIODARONE [Concomitant]
     Active Substance: AMIODARONE
  7. XARELTO [Concomitant]
     Active Substance: RIVAROXABAN
  8. ONDANSETRON [Concomitant]
     Active Substance: ONDANSETRON
  9. ADCIRCA [Suspect]
     Active Substance: TADALAFIL
     Indication: PULMONARY ARTERIAL HYPERTENSION
     Route: 048
     Dates: start: 20170207
  10. VELETRI [Concomitant]
     Active Substance: EPOPROSTENOL
  11. FUROSEMIDE. [Concomitant]
     Active Substance: FUROSEMIDE
  12. ENALAPRIL [Concomitant]
     Active Substance: ENALAPRIL
  13. POTASSIUM CHLORIDE. [Concomitant]
     Active Substance: POTASSIUM CHLORIDE
  14. LETAIRIS [Concomitant]
     Active Substance: AMBRISENTAN
  15. APAP/CODEINE [Concomitant]
     Active Substance: ACETAMINOPHEN\CODEINE PHOSPHATE
  16. TRAMADOL. [Concomitant]
     Active Substance: TRAMADOL
  17. GABAPENTIN. [Concomitant]
     Active Substance: GABAPENTIN
  18. SMZ/TMP [Concomitant]
     Active Substance: SULFAMETHOXAZOLE\TRIMETHOPRIM
  19. DOXYCYCL HYC [Concomitant]

REACTIONS (3)
  - Staphylococcal infection [None]
  - Bite [None]
  - Therapy cessation [None]

NARRATIVE: CASE EVENT DATE: 20181027
